FAERS Safety Report 9146804 (Version 1)
Quarter: 2013Q1

REPORT INFORMATION
  Report Type: Spontaneous
  Country: US (occurrence: None)
  Receive Date: 20130204
  Receipt Date: 20130204
  Transmission Date: 20140127
  Serious: Yes (Death)
  Sender: FDA-Public Use
  Company Number: 2013010117

PATIENT
  Sex: 0

DRUGS (8)
  1. ZOLPIDEM [Suspect]
  2. CARISOPRODOL [Suspect]
  3. ALCOHOL (ETHANOL) [Suspect]
  4. ACETAMINOPHEN [Suspect]
  5. OXYCODONE [Suspect]
  6. AMITRIPTYLINE [Suspect]
  7. NORTRIPTYLINE [Suspect]
  8. GABAPENTIN [Suspect]

REACTIONS (2)
  - Death [None]
  - Overdose [None]
